FAERS Safety Report 7647158-9 (Version None)
Quarter: 2011Q3

REPORT INFORMATION
  Report Type: 
  Country: None (occurrence: None)
  Receive Date: 20110801
  Receipt Date: 20110720
  Transmission Date: 20111222
  Serious: Yes (Hospitalization)
  Sender: FDA-Public Use
  Company Number: AU-JNJFOC-20110711666

PATIENT
  Sex: Female

DRUGS (18)
  1. IMDUR [Concomitant]
  2. PRILOSEC [Concomitant]
  3. ALBUTEROL SULATE [Concomitant]
  4. CARDIZEM [Concomitant]
  5. DIPROSONE [Concomitant]
  6. LIPITOR [Concomitant]
  7. PLAVIX [Concomitant]
  8. LASIX [Concomitant]
  9. VARENICLINE TARTRATE [Suspect]
     Indication: PRODUCT USED FOR UNKNOWN INDICATION
     Route: 048
     Dates: start: 20110401, end: 20110601
  10. PERINDOPRIL ERBUMINE [Concomitant]
  11. METFORMIN HCL [Concomitant]
  12. MAXOLON [Concomitant]
  13. NITROLINGUAL [Concomitant]
  14. SERETIDE [Concomitant]
     Route: 055
  15. TRAMADOL HCL [Suspect]
     Indication: PRODUCT USED FOR UNKNOWN INDICATION
     Route: 048
     Dates: start: 20091115, end: 20110601
  16. ASPIRIN [Concomitant]
  17. FERROUS SULFATE TAB [Concomitant]
     Route: 048
  18. PANAMAX [Concomitant]

REACTIONS (4)
  - CONFUSIONAL STATE [None]
  - MYDRIASIS [None]
  - AMNESIA [None]
  - MUSCLE TWITCHING [None]
